FAERS Safety Report 4562702-6 (Version None)
Quarter: 2005Q1

REPORT INFORMATION
  Report Type: 
  Country: None (occurrence: None)
  Receive Date: 20050124
  Receipt Date: 20050111
  Transmission Date: 20050727
  Serious: Yes (Death)
  Sender: FDA-Public Use
  Company Number: 2004120544

PATIENT
  Age: 52 Year
  Sex: Female

DRUGS (4)
  1. SOLU-MEDROL [Suspect]
     Indication: ENGRAFTMENT SYNDROME
     Dosage: 1 MG/KG
  2. TACROLIMUS (TACROLIMUS) [Suspect]
     Indication: GRAFT VERSUS HOST DISEASE
  3. FLUDARABINE PHOSPHATE [Concomitant]
  4. MELPHALAN (MELPHALAN) [Concomitant]

REACTIONS (6)
  - COMPLICATIONS OF TRANSPLANT SURGERY [None]
  - ENGRAFTMENT SYNDROME [None]
  - HAEMORRHAGIC CEREBRAL INFARCTION [None]
  - INTRAVASCULAR PAPILLARY ENDOTHELIAL HYPERPLASIA [None]
  - RENAL DISORDER [None]
  - THROMBOTIC MICROANGIOPATHY [None]
